FAERS Safety Report 9434613 (Version 1)
Quarter: 2013Q3

REPORT INFORMATION
  Report Type: Spontaneous
  Country: US (occurrence: US)
  Receive Date: 20130801
  Receipt Date: 20130801
  Transmission Date: 20140515
  Serious: No
  Sender: FDA-Public Use
  Company Number: US-PFIZER INC-2013220774

PATIENT
  Age: 45 Year
  Sex: Female

DRUGS (8)
  1. ZOLOFT [Suspect]
     Dosage: UNK
  2. DOXYCYCLINE HYCLATE [Suspect]
     Dosage: UNK
  3. PAXIL [Suspect]
     Dosage: UNK
  4. FLEXERIL [Suspect]
     Dosage: UNK
  5. INDOCIN [Suspect]
     Dosage: UNK
  6. CODEINE [Suspect]
     Dosage: UNK
  7. ENDOCET [Suspect]
     Dosage: UNK
  8. IMMODIUM [Suspect]
     Dosage: UNK

REACTIONS (1)
  - Drug hypersensitivity [Unknown]
